FAERS Safety Report 14581273 (Version 1)
Quarter: 2018Q1

REPORT INFORMATION
  Report Type: Spontaneous
  Country: AT (occurrence: AT)
  Receive Date: 20180228
  Receipt Date: 20180228
  Transmission Date: 20180509
  Serious: Yes (Other)
  Sender: FDA-Public Use
  Company Number: AT-ALKEM LABORATORIES LIMITED-AT-ALKEM-2018-00854

PATIENT
  Age: 2 Year

DRUGS (1)
  1. LAMOTRIGINE. [Suspect]
     Active Substance: LAMOTRIGINE
     Indication: PRODUCT USED FOR UNKNOWN INDICATION
     Dosage: 6.5 MG/KG, UNK
     Route: 048

REACTIONS (6)
  - Toxicity to various agents [Unknown]
  - Muscle contractions involuntary [Unknown]
  - Ataxia [Unknown]
  - Seizure [Unknown]
  - Vomiting [Unknown]
  - Agitation [Unknown]
